FAERS Safety Report 18742496 (Version 3)
Quarter: 2021Q1

REPORT INFORMATION
  Report Type: Spontaneous
  Country: US (occurrence: US)
  Receive Date: 20210114
  Receipt Date: 20210219
  Transmission Date: 20210419
  Serious: Yes (Hospitalization, Other)
  Sender: FDA-Public Use
  Company Number: US-PFIZER INC-2021002008

PATIENT
  Age: 83 Year
  Sex: Female
  Weight: 79 kg

DRUGS (1)
  1. ROBITUSSIN MAXIMUM STRENGTH COUGH PLUS CHEST CONGESTION DM [Suspect]
     Active Substance: DEXTROMETHORPHAN HYDROBROMIDE\GUAIFENESIN
     Indication: COUGH
     Dosage: 1 TEASPOON OR TABLE SPOON, PACKAGE DIRECTION
     Dates: start: 20170904, end: 20171024

REACTIONS (6)
  - Myocardial infarction [Unknown]
  - Catheterisation cardiac [Unknown]
  - Dyspnoea [Recovered/Resolved]
  - Wound [Recovered/Resolved]
  - Coronary artery occlusion [Recovered/Resolved]
  - Anaphylactic reaction [Recovered/Resolved]

NARRATIVE: CASE EVENT DATE: 20171004
